FAERS Safety Report 25257282 (Version 2)
Quarter: 2025Q2

REPORT INFORMATION
  Report Type: Report from Study
  Country: CA (occurrence: CA)
  Receive Date: 20250430
  Receipt Date: 20250602
  Transmission Date: 20250717
  Serious: Yes (Other)
  Sender: TEVA
  Company Number: CA-TEVA-VS-3322937

PATIENT
  Age: 91 Year
  Sex: Female
  Weight: 51.256 kg

DRUGS (7)
  1. TERIPARATIDE [Suspect]
     Active Substance: TERIPARATIDE
     Indication: Osteoporosis
     Route: 058
     Dates: start: 20250112
  2. TERIPARATIDE [Suspect]
     Active Substance: TERIPARATIDE
     Route: 065
  3. AMLODIPINE [Concomitant]
     Active Substance: AMLODIPINE BESYLATE
     Indication: Product used for unknown indication
     Route: 065
  4. HYDROMORPHONE [Concomitant]
     Active Substance: HYDROMORPHONE
     Indication: Product used for unknown indication
     Dosage: AT BED TIME
     Route: 065
  5. SENOKOT [Concomitant]
     Active Substance: SENNOSIDES
     Indication: Product used for unknown indication
     Route: 065
  6. Calcium powder [Concomitant]
     Indication: Product used for unknown indication
     Route: 065
  7. Vitamin K + D [Concomitant]
     Indication: Product used for unknown indication
     Route: 065

REACTIONS (10)
  - Blood pressure diastolic increased [Unknown]
  - Rhinorrhoea [Unknown]
  - Incorrect dose administered [Unknown]
  - Cough [Unknown]
  - Injection site haemorrhage [Unknown]
  - Device malfunction [Unknown]
  - Dizziness [Unknown]
  - Malaise [Unknown]
  - Oropharyngeal pain [Unknown]
  - Influenza [Unknown]

NARRATIVE: CASE EVENT DATE: 20240401
